FAERS Safety Report 6361578-4 (Version None)
Quarter: 2009Q3

REPORT INFORMATION
  Report Type: 
  Country: None (occurrence: None)
  Receive Date: 20090915
  Receipt Date: 20090915
  Transmission Date: 20100115
  Serious: Yes (Hospitalization)
  Sender: FDA-Public Use
  Company Number: None

PATIENT
  Sex: Female
  Weight: 153 kg

DRUGS (2)
  1. ARIXTRA [Suspect]
     Indication: ANTICOAGULANT THERAPY
     Dosage: 10MG DAILY SQ
     Route: 058
     Dates: start: 20090724, end: 20090728
  2. ARIXTRA [Suspect]
     Indication: SURGERY
     Dosage: 10MG DAILY SQ
     Route: 058
     Dates: start: 20090724, end: 20090728

REACTIONS (3)
  - DERMATITIS [None]
  - PAIN [None]
  - UNEVALUABLE EVENT [None]
